FAERS Safety Report 21522716 (Version 2)
Quarter: 2022Q4

REPORT INFORMATION
  Report Type: Spontaneous
  Country: SE (occurrence: SE)
  Receive Date: 20221029
  Receipt Date: 20221104
  Transmission Date: 20230113
  Serious: Yes (Other)
  Sender: FDA-Public Use
  Company Number: SE-MPA-2022-019873

PATIENT
  Age: 72 Year
  Sex: Male

DRUGS (1)
  1. SERTRALINE [Suspect]
     Active Substance: SERTRALINE HYDROCHLORIDE
     Indication: Product used for unknown indication
     Dosage: UNK
     Route: 065

REACTIONS (13)
  - Hyperhidrosis [Unknown]
  - Muscle atrophy [Unknown]
  - Sleep disorder [Unknown]
  - Motor dysfunction [Unknown]
  - Confusional state [Unknown]
  - Anxiety [Unknown]
  - Memory impairment [Unknown]
  - Diarrhoea [Unknown]
  - Nausea [Unknown]
  - Weight decreased [Unknown]
  - Muscle spasms [Unknown]
  - Tremor [Unknown]
  - Taste disorder [Unknown]
